FAERS Safety Report 12508655 (Version 2)
Quarter: 2016Q3

REPORT INFORMATION
  Report Type: Report from Study
  Country: US (occurrence: US)
  Receive Date: 20160629
  Receipt Date: 20160813
  Transmission Date: 20161109
  Serious: Yes (Other)
  Sender: FDA-Public Use
  Company Number: US-AMGEN-USASL2016081276

PATIENT
  Age: 73 Year
  Sex: Female

DRUGS (1)
  1. PROLIA [Suspect]
     Active Substance: DENOSUMAB
     Indication: PRODUCT USED FOR UNKNOWN INDICATION
     Dosage: UNK
     Route: 065

REACTIONS (9)
  - Fibula fracture [Unknown]
  - Bone pain [Unknown]
  - Osteoporosis [Unknown]
  - Tibia fracture [Unknown]
  - Spinal operation [Unknown]
  - Neck surgery [Unknown]
  - Cataract operation [Unknown]
  - Pain in extremity [Unknown]
  - Upper limb fracture [Unknown]
